FAERS Safety Report 12216362 (Version 2)
Quarter: 2016Q2

REPORT INFORMATION
  Report Type: Spontaneous
  Country: AR (occurrence: AR)
  Receive Date: 20160329
  Receipt Date: 20160419
  Transmission Date: 20160815
  Serious: Yes (Disabling, Other)
  Sender: FDA-Public Use
  Company Number: AR-AMGEN-ARGSP2016038418

PATIENT
  Age: 78 Year
  Sex: Female

DRUGS (1)
  1. ENBREL [Suspect]
     Active Substance: ETANERCEPT
     Indication: RHEUMATOID ARTHRITIS
     Dosage: 25 MG, 2X/WEEK
     Route: 065
     Dates: start: 20081002

REACTIONS (6)
  - Fall [Not Recovered/Not Resolved]
  - Hip fracture [Not Recovered/Not Resolved]
  - Musculoskeletal disorder [Not Recovered/Not Resolved]
  - Hypertension [Not Recovered/Not Resolved]
  - Abasia [Not Recovered/Not Resolved]
  - Diabetes mellitus [Not Recovered/Not Resolved]

NARRATIVE: CASE EVENT DATE: 201510
